FAERS Safety Report 5340096-6 (Version None)
Quarter: 2007Q2

REPORT INFORMATION
  Report Type: 
  Country: None (occurrence: None)
  Receive Date: 20070525
  Receipt Date: 20070525
  Transmission Date: 20071010
  Serious: Yes (Hospitalization)
  Sender: FDA-Public Use
  Company Number: None

PATIENT
  Age: 83 Year
  Sex: Female
  Weight: 87.0906 kg

DRUGS (11)
  1. BENICAR [Suspect]
     Indication: HYPERTENSION
     Dosage: DAILY PO
     Route: 048
  2. MOBIC [Suspect]
     Indication: PAIN
     Dosage: DAILY PO
     Route: 048
  3. LIPITOR [Concomitant]
  4. ASPIRIN [Concomitant]
  5. NORVASC [Concomitant]
  6. BENICAR [Concomitant]
  7. NEXIUM [Concomitant]
  8. MOBIC [Concomitant]
  9. ULTRAM [Concomitant]
  10. NEURONTIN [Concomitant]
  11. HYDRALAZINE HCL [Concomitant]

REACTIONS (6)
  - BRADYCARDIA [None]
  - DEHYDRATION [None]
  - HYPERKALAEMIA [None]
  - HYPERVOLAEMIA [None]
  - RENAL FAILURE ACUTE [None]
  - RENAL TUBULAR ACIDOSIS [None]
